FAERS Safety Report 7747844 (Version 3)
Quarter: 2014Q2

REPORT INFORMATION
  Report Type: Report from Study
  Country: JP (occurrence: JP)
  Receive Date: 20110104
  Receipt Date: 20140520
  Transmission Date: 20141212
  Serious: No
  Sender: FDA-Public Use
  Company Number: JP-GILEAD-E2B_00001012

PATIENT
  Sex: Female
  Weight: 37 kg

DRUGS (16)
  1. AMBRISENTAN [Suspect]
     Indication: PULMONARY ARTERIAL HYPERTENSION
     Dosage: 5 MG, QD
     Route: 048
     Dates: start: 20101217
  2. AMBRISENTAN [Suspect]
     Dosage: 2.5 MG, QD
     Route: 048
     Dates: start: 20101213, end: 20101216
  3. TRACLEER [Suspect]
     Indication: PULMONARY ARTERIAL HYPERTENSION
     Dosage: UNK
     Route: 048
     Dates: end: 20101212
  4. REVATIO [Concomitant]
     Indication: PULMONARY ARTERIAL HYPERTENSION
     Route: 048
  5. BERAPROST SODIUM [Concomitant]
     Indication: PULMONARY ARTERIAL HYPERTENSION
     Dosage: 60 ?G, BID
     Route: 048
  6. PREDONINE                          /00016201/ [Concomitant]
     Dosage: UNK
     Route: 048
     Dates: start: 20101213, end: 20110107
  7. TAKEPRON [Concomitant]
     Dosage: UNK
     Route: 048
     Dates: start: 20101213, end: 20110107
  8. FLUCONAZOL [Concomitant]
     Dosage: UNK
     Route: 048
     Dates: start: 20101213
  9. FOLIAMIN [Concomitant]
     Dosage: UNK
     Route: 048
     Dates: end: 20110113
  10. JUVELA N [Concomitant]
     Route: 048
  11. ALDACTONE A [Concomitant]
     Route: 048
  12. NORVASC [Concomitant]
     Route: 048
  13. FERROMIA [Concomitant]
     Route: 048
  14. BONALON [Concomitant]
     Route: 048
  15. METHYLCOBAL [Concomitant]
     Dosage: UNK
     Route: 048
     Dates: end: 20110113
  16. ANPLAG [Concomitant]
     Dosage: UNK
     Route: 048
     Dates: end: 20110107

REACTIONS (1)
  - No adverse event [Unknown]
